FAERS Safety Report 19880917 (Version 3)
Quarter: 2022Q3

REPORT INFORMATION
  Report Type: Spontaneous
  Country: US (occurrence: None)
  Receive Date: 20210924
  Receipt Date: 20220701
  Transmission Date: 20221026
  Serious: Yes (Other)
  Sender: FDA-Public Use
  Company Number: 2021A730500

PATIENT
  Sex: Female
  Weight: 63.5 kg

DRUGS (5)
  1. NEXIUM [Suspect]
     Active Substance: ESOMEPRAZOLE MAGNESIUM
     Indication: Gastrooesophageal reflux disease
     Route: 048
     Dates: start: 201701, end: 201901
  2. NEXIUM [Suspect]
     Active Substance: ESOMEPRAZOLE MAGNESIUM
     Indication: Gastrooesophageal reflux disease
     Dosage: 40.0MG UNKNOWN
     Route: 048
     Dates: start: 2006, end: 2020
  3. KEFLEX [Concomitant]
     Active Substance: CEPHALEXIN
     Indication: Infection
  4. PREDNISONE [Concomitant]
     Active Substance: PREDNISONE
     Indication: Inflammation
  5. ZANAFLEX [Concomitant]
     Active Substance: TIZANIDINE HYDROCHLORIDE
     Indication: Muscle spasms

REACTIONS (2)
  - Acute kidney injury [Unknown]
  - Chronic kidney disease [Not Recovered/Not Resolved]
